FAERS Safety Report 5515433-X (Version None)
Quarter: 2007Q4

REPORT INFORMATION
  Report Type: 
  Country: None (occurrence: None)
  Receive Date: 20071113
  Receipt Date: 20070214
  Transmission Date: 20080405
  Serious: No
  Sender: FDA-Public Use
  Company Number: A0639581A

PATIENT
  Age: 69 Year
  Sex: Female

DRUGS (5)
  1. COREG [Suspect]
     Indication: DRUG USE FOR UNKNOWN INDICATION
     Dosage: 6.25MG TWICE PER DAY
     Route: 048
     Dates: start: 20050801
  2. ZOCOR [Concomitant]
  3. LASIX [Concomitant]
  4. ASPIRIN [Concomitant]
  5. GLUCOTROL [Concomitant]

REACTIONS (2)
  - AGEUSIA [None]
  - DYSGEUSIA [None]
